FAERS Safety Report 17505238 (Version 8)
Quarter: 2024Q1

REPORT INFORMATION
  Report Type: Spontaneous
  Country: US (occurrence: US)
  Receive Date: 20200305
  Receipt Date: 20240321
  Transmission Date: 20240410
  Serious: Yes (Hospitalization, Other)
  Sender: FDA-Public Use
  Company Number: US-AMNEAL PHARMACEUTICALS-2020-AMRX-00664

PATIENT
  Age: 28 Year
  Sex: Female
  Weight: 92 kg

DRUGS (10)
  1. ACTIVELLA [Suspect]
     Active Substance: ESTRADIOL\NORETHINDRONE ACETATE
     Indication: Endometriosis
     Dosage: 1.0/0.5MG, 1 DOSAGE FORM, DAILY
     Route: 048
     Dates: start: 20180705, end: 20190603
  2. ACTIVELLA [Suspect]
     Active Substance: ESTRADIOL\NORETHINDRONE ACETATE
     Dosage: 1.0/0.5MG, 1 DOSAGE FORM, DAILY
     Route: 048
     Dates: start: 20190603, end: 20191220
  3. ELAGOLIX [Suspect]
     Active Substance: ELAGOLIX
     Indication: Endometriosis
     Dosage: 200 MILLIGRAM, 2X/DAY
     Route: 048
     Dates: start: 20180705, end: 20190603
  4. ELAGOLIX [Suspect]
     Active Substance: ELAGOLIX
     Dosage: 200 MILLIGRAM, 2X/DAY
     Route: 048
     Dates: start: 20190603, end: 20191220
  5. PREVACID [Concomitant]
     Active Substance: LANSOPRAZOLE
     Indication: Gastrooesophageal reflux disease
     Dosage: 30 MILLIGRAM, DAILY
     Route: 048
     Dates: start: 2000, end: 20181112
  6. PREVACID [Concomitant]
     Active Substance: LANSOPRAZOLE
     Dosage: 40 MILLIGRAM, BID
     Route: 048
     Dates: start: 20181112, end: 20190107
  7. PREVACID [Concomitant]
     Active Substance: LANSOPRAZOLE
     Dosage: 30 MILLIGRAM, DAILY
     Route: 048
     Dates: start: 20190107
  8. PHENERGAN [Concomitant]
     Active Substance: PROMETHAZINE HYDROCHLORIDE
     Indication: Peptic ulcer
     Dosage: 25 MILLIGRAM, AS REQUIRED
     Route: 048
     Dates: start: 20180417
  9. PHENERGAN [Concomitant]
     Active Substance: PROMETHAZINE HYDROCHLORIDE
     Indication: Prophylaxis of nausea and vomiting
  10. FERROUS SULFATE [Concomitant]
     Active Substance: FERROUS SULFATE
     Indication: Fatigue
     Dosage: 325 MILLIGRAM, DAILY
     Route: 048
     Dates: start: 20190120

REACTIONS (2)
  - Abortion spontaneous [Recovered/Resolved]
  - Maternal exposure timing unspecified [Unknown]

NARRATIVE: CASE EVENT DATE: 20200204
